FAERS Safety Report 8714967 (Version 2)
Quarter: 2012Q4

REPORT INFORMATION
  Report Type: 
  Country: AU (occurrence: AU)
  Receive Date: 20120809
  Receipt Date: 20120928
  Transmission Date: 20130627
  Serious: Yes (Death, Hospitalization, Other)
  Sender: FDA-Public Use
  Company Number: PHHY2012AU068352

PATIENT
  Sex: Female

DRUGS (6)
  1. ACLASTA [Suspect]
     Dosage: 5 mg, UNK
     Route: 042
     Dates: start: 20100303
  2. ATENOLOL [Concomitant]
     Indication: BLOOD PRESSURE
     Dosage: 50 mg, once daily
     Route: 048
  3. CODEINE PO4 [Concomitant]
     Indication: PAIN
     Dosage: 30 mg, PRN
     Route: 048
  4. CRESTOR [Concomitant]
     Indication: LIPIDS
     Dosage: 40 mg, 1 at night
     Route: 048
  5. THYROXINE [Concomitant]
     Indication: THYROID DISORDER
     Dosage: 100 ug, one daily
     Route: 048
  6. ZOLOFT [Concomitant]
     Indication: DEPRESSION
     Dosage: 100 mg, one daily
     Route: 048

REACTIONS (9)
  - Urinary tract infection [Fatal]
  - Urosepsis [Fatal]
  - Colitis ulcerative [Fatal]
  - Diarrhoea [Fatal]
  - Acute myocardial infarction [Fatal]
  - Cardiac failure [Fatal]
  - Fall [Unknown]
  - Lumbar vertebral fracture [Unknown]
  - Glomerular filtration rate decreased [Unknown]
